FAERS Safety Report 15112160 (Version 1)
Quarter: 2018Q3

REPORT INFORMATION
  Report Type: Spontaneous
  Country: GB (occurrence: FR)
  Receive Date: 20180705
  Receipt Date: 20180705
  Transmission Date: 20181010
  Serious: Yes (Life-Threatening, Hospitalization)
  Sender: FDA-Public Use
  Company Number: FR-FRESENIUS KABI-FK201807422

PATIENT
  Age: 56 Year
  Sex: Male

DRUGS (3)
  1. SUXAMETHONIUM (CHLORURE DE) [Suspect]
     Active Substance: SUCCINYLCHOLINE CHLORIDE
     Indication: ANAESTHESIA
     Route: 042
     Dates: start: 20170926, end: 20170926
  2. PROPOFOL (MANUFACTURER UNKNOWN) [Suspect]
     Active Substance: PROPOFOL
     Indication: ANAESTHESIA
     Route: 042
     Dates: start: 20170926, end: 20170926
  3. KETAMINE [Suspect]
     Active Substance: KETAMINE
     Indication: ANAESTHESIA
     Route: 042
     Dates: start: 20170926, end: 20170926

REACTIONS (1)
  - Anaphylactic shock [Recovered/Resolved]

NARRATIVE: CASE EVENT DATE: 20170926
